FAERS Safety Report 12954781 (Version 1)
Quarter: 2016Q4

REPORT INFORMATION
  Report Type: Spontaneous
  Country: US (occurrence: US)
  Receive Date: 20161117
  Receipt Date: 20161117
  Transmission Date: 20170207
  Serious: Yes (Life-Threatening, Hospitalization)
  Sender: FDA-Public Use
  Company Number: None

PATIENT
  Age: 5 Month
  Sex: Male

DRUGS (1)
  1. LEXISCAN [Suspect]
     Active Substance: REGADENOSON
     Indication: CARDIAC STRESS TEST
     Dosage: ?          OTHER FREQUENCY:X1;?
     Route: 042

REACTIONS (5)
  - Bradycardia [None]
  - Product quality issue [None]
  - Loss of consciousness [None]
  - Blood pressure decreased [None]
  - Respiratory rate decreased [None]

NARRATIVE: CASE EVENT DATE: 20161116
